FAERS Safety Report 11008294 (Version 6)
Quarter: 2015Q4

REPORT INFORMATION
  Report Type: Spontaneous
  Country: US (occurrence: US)
  Receive Date: 20150410
  Receipt Date: 20151120
  Transmission Date: 20160304
  Serious: Yes (Death, Other)
  Sender: FDA-Public Use
  Company Number: US-PFIZER INC-2015117155

PATIENT
  Age: 51 Year
  Sex: Male
  Weight: 72 kg

DRUGS (30)
  1. RAPAMUNE [Suspect]
     Active Substance: SIROLIMUS
     Indication: RENAL CANCER
     Dosage: 1 MG, 1X/DAY
     Route: 048
     Dates: start: 20141211
  2. RAPAMUNE [Suspect]
     Active Substance: SIROLIMUS
     Dosage: 1 MG, DAILY
     Route: 048
     Dates: start: 20151104
  3. FLORINEF ACETATE [Concomitant]
     Active Substance: FLUDROCORTISONE ACETATE
     Dosage: 0.1 MG, DAILY
     Route: 048
     Dates: start: 20150518
  4. PROTONIX [Concomitant]
     Active Substance: PANTOPRAZOLE SODIUM
     Dosage: UNK
     Dates: end: 201506
  5. ASPIRIN /00002701/ [Concomitant]
     Active Substance: ASPIRIN
     Dosage: 81 MG, DAILY
     Route: 048
     Dates: start: 20140328
  6. OXYCODONE [Concomitant]
     Active Substance: OXYCODONE
     Dosage: UNK
     Dates: end: 201505
  7. LYRICA [Concomitant]
     Active Substance: PREGABALIN
     Dosage: 100 MG, 2X/DAY
     Route: 048
     Dates: start: 20150413
  8. SLOW-MAG [Concomitant]
     Active Substance: MAGNESIUM CHLORIDE
     Dosage: 1 DF, 3X/DAY
     Route: 048
     Dates: start: 20150326
  9. UROCIT-K [Concomitant]
     Active Substance: POTASSIUM CITRATE
     Dosage: 20 MEQ, 2X/DAY
     Route: 048
     Dates: start: 20150518
  10. LOPRESSOR [Concomitant]
     Active Substance: METOPROLOL TARTRATE
     Dosage: 50 MG, 2X/DAY
     Route: 048
     Dates: start: 20150518
  11. COMPAZINE [Concomitant]
     Active Substance: PROCHLORPERAZINE MALEATE
     Indication: VOMITING
  12. RAPAMUNE [Suspect]
     Active Substance: SIROLIMUS
     Indication: RENAL TRANSPLANT
     Dosage: 1 MG, 2X/DAY
     Route: 048
     Dates: start: 20150130
  13. LANTUS [Concomitant]
     Active Substance: INSULIN GLARGINE
     Dosage: 1X/DAY (10 UNITS, EVERY EVENING)
     Route: 058
     Dates: start: 20150223
  14. COMPAZINE [Concomitant]
     Active Substance: PROCHLORPERAZINE MALEATE
     Indication: NAUSEA
     Dosage: 10 MG, AS NEEDED (EVERY 6 HOURS)
     Route: 048
     Dates: start: 20150326
  15. NOVOLOG [Concomitant]
     Active Substance: INSULIN ASPART
     Dosage: 3X/DAY (100 UNIT/ML (BEFORE MEALS))
     Route: 058
     Dates: start: 20150326
  16. DIGITEK [Concomitant]
     Active Substance: DIGOXIN
     Dosage: 125 ?G, DAILY
     Route: 048
     Dates: start: 20150518
  17. CARDIZEM LA [Concomitant]
     Active Substance: DILTIAZEM HYDROCHLORIDE
     Dosage: 180 MG, DAILY
     Route: 048
     Dates: start: 20150518
  18. VICODIN HP [Concomitant]
     Active Substance: ACETAMINOPHEN\HYDROCODONE BITARTRATE
     Indication: PAIN
     Dosage: UNK, (10MG-HYDROCODONE BITARTRATE, PARACETAMOL-300 MG) (EVERY 6 HOURS)
     Route: 048
     Dates: start: 20150518
  19. UBIQUINONE [Concomitant]
     Dosage: 100 MG, 2X/DAY
     Route: 048
     Dates: start: 20150518
  20. FERROUS FUMARATE [Concomitant]
     Active Substance: FERROUS FUMARATE
     Dosage: UNK
  21. VOTRIENT [Concomitant]
     Active Substance: PAZOPANIB HYDROCHLORIDE
     Dosage: UNK (POSSIBLE RESUME IN JULY)
     Dates: end: 201505
  22. LASIX [Concomitant]
     Active Substance: FUROSEMIDE
     Dosage: 1 DF, DAILY (20 MG)
     Route: 048
     Dates: start: 20150527
  23. RAPAMUNE [Suspect]
     Active Substance: SIROLIMUS
     Indication: RENAL CANCER
     Dosage: 1 MG, 1X/DAY
     Route: 048
     Dates: start: 201502
  24. BACTRIM [Concomitant]
     Active Substance: SULFAMETHOXAZOLE\TRIMETHOPRIM
     Dosage: 1 DF, (3 TIMES PER WEEK)
     Route: 048
     Dates: start: 20150326
  25. FOLVITE [Concomitant]
     Active Substance: FOLIC ACID
     Dosage: 1 MG, DAILY
     Route: 048
     Dates: start: 20150130
  26. COUMADINE [Concomitant]
     Active Substance: WARFARIN SODIUM
     Dosage: 5 MG, 1X/DAY (NIGHTLY)
     Route: 048
     Dates: start: 20150326
  27. PRAVACHOL [Concomitant]
     Active Substance: PRAVASTATIN SODIUM
     Dosage: 40 MG, 1X/DAY
     Route: 048
     Dates: start: 20150319, end: 201506
  28. FERROUS SULFATE [Concomitant]
     Active Substance: FERROUS SULFATE\FERROUS SULFATE, DRIED
     Dosage: 325 MG, 2X/DAY
     Route: 048
     Dates: start: 20140328
  29. CORTEF [Concomitant]
     Active Substance: HYDROCORTISONE
     Dosage: 15 MG, 1X/DAY (EVERY MORNING)
     Route: 048
     Dates: start: 20150518
  30. SALINE MIST [Concomitant]
     Active Substance: SODIUM CHLORIDE
     Dosage: 2 DF, AS NEEDED (4X/DAY)
     Route: 045
     Dates: start: 20150326

REACTIONS (6)
  - Fall [Unknown]
  - Cardiac failure [Fatal]
  - Multiple fractures [Unknown]
  - Neoplasm progression [Unknown]
  - Renal cell carcinoma [Unknown]
  - Drug ineffective for unapproved indication [Unknown]

NARRATIVE: CASE EVENT DATE: 20151110
